FAERS Safety Report 24273154 (Version 1)
Quarter: 2024Q3

REPORT INFORMATION
  Report Type: Spontaneous
  Country: US (occurrence: None)
  Receive Date: 20240902
  Receipt Date: 20240902
  Transmission Date: 20241016
  Serious: Yes (Life-Threatening)
  Sender: ASTRAZENECA
  Company Number: 2024A196212

PATIENT
  Sex: Female

DRUGS (2)
  1. TEZSPIRE [Suspect]
     Active Substance: TEZEPELUMAB-EKKO
     Indication: Asthma
     Dates: start: 20240101
  2. FASENRA [Suspect]
     Active Substance: BENRALIZUMAB
     Indication: Asthma
     Dates: start: 20240801

REACTIONS (17)
  - Dyspnoea [Unknown]
  - Drug ineffective [Unknown]
  - Illness [Unknown]
  - Drug hypersensitivity [Unknown]
  - Fatigue [Unknown]
  - Dizziness [Unknown]
  - Gait disturbance [Unknown]
  - Visual impairment [Unknown]
  - Syncope [Unknown]
  - Somnolence [Unknown]
  - Dizziness [Unknown]
  - Vomiting [Unknown]
  - Vertigo [Unknown]
  - Fall [Unknown]
  - Impaired work ability [Unknown]
  - Loss of consciousness [Unknown]
  - General symptom [Unknown]
